FAERS Safety Report 23293323 (Version 1)
Quarter: 2023Q4

REPORT INFORMATION
  Report Type: Spontaneous
  Country: US (occurrence: US)
  Receive Date: 20231213
  Receipt Date: 20231213
  Transmission Date: 20240110
  Serious: No
  Sender: FDA-Public Use
  Company Number: US-NOVOPROD-1049138

PATIENT
  Sex: Female

DRUGS (1)
  1. LEVEMIR [Suspect]
     Active Substance: INSULIN DETEMIR
     Indication: Type 2 diabetes mellitus
     Dosage: 75 MG, BID
     Route: 058
     Dates: start: 2021

REACTIONS (3)
  - Arthritis [Not Recovered/Not Resolved]
  - Injection site discharge [Not Recovered/Not Resolved]
  - Device malfunction [Unknown]
